FAERS Safety Report 6403938-9 (Version None)
Quarter: 2009Q4

REPORT INFORMATION
  Report Type: 
  Country: None (occurrence: None)
  Receive Date: 20091015
  Receipt Date: 20091015
  Transmission Date: 20100525
  Serious: Yes (Death, Hospitalization, Disabling, Other)
  Sender: FDA-Public Use
  Company Number: None

PATIENT
  Age: 82 Year
  Sex: Female

DRUGS (2)
  1. PRILOSEC [Suspect]
     Dosage: 4000 UNITS 1000 UNITS PER HOUR IV
     Route: 042
     Dates: start: 19991111
  2. PRILOSEC [Suspect]
     Dosage: 4000 UNITS 1000 UNITS PER HOUR IV
     Route: 042
     Dates: start: 20000105

REACTIONS (2)
  - GASTROINTESTINAL HAEMORRHAGE [None]
  - GENERAL PHYSICAL CONDITION ABNORMAL [None]
